FAERS Safety Report 5508362-9 (Version None)
Quarter: 2007Q4

REPORT INFORMATION
  Report Type: 
  Country: None (occurrence: None)
  Receive Date: 20071106
  Receipt Date: 20071031
  Transmission Date: 20080405
  Serious: Yes (Hospitalization)
  Sender: FDA-Public Use
  Company Number: DE-MERCK-0710DEU00373

PATIENT
  Sex: Male
  Weight: 122 kg

DRUGS (11)
  1. JANUVIA [Suspect]
     Route: 048
     Dates: start: 20070801, end: 20070925
  2. PIOGLITAZONE HYDROCHLORIDE [Concomitant]
     Route: 048
  3. ALLOPURINOL [Concomitant]
     Indication: GOUT
     Route: 065
     Dates: end: 20070901
  4. ALLOPURINOL [Concomitant]
     Route: 048
     Dates: start: 20070101
  5. METOCLOPRAMIDE [Concomitant]
     Indication: NAUSEA
     Route: 065
  6. BENAZEPRIL HYDROCHLORIDE AND HYDROCHLOROTHIAZIDE [Concomitant]
     Indication: HYPERTENSION
     Route: 048
  7. FUROSEMIDE [Concomitant]
     Indication: HYPERTENSION
     Route: 048
  8. CARVEDILOL [Concomitant]
     Indication: HYPERTENSION
     Route: 065
  9. ASPIRIN [Concomitant]
     Indication: PROPHYLAXIS
     Route: 048
  10. VYTORIN [Concomitant]
     Indication: HYPERLIPIDAEMIA
     Route: 048
     Dates: end: 20070801
  11. AZATHIOPRINE [Suspect]
     Indication: COLITIS ULCERATIVE
     Route: 048
     Dates: start: 19970101, end: 20070901

REACTIONS (7)
  - ASTHENIA [None]
  - C-REACTIVE PROTEIN INCREASED [None]
  - DYSURIA [None]
  - GOUT [None]
  - HEADACHE [None]
  - PANCYTOPENIA [None]
  - SYNCOPE VASOVAGAL [None]
